FAERS Safety Report 5507328-2 (Version None)
Quarter: 2007Q4

REPORT INFORMATION
  Report Type: 
  Country: None (occurrence: None)
  Receive Date: 20071030
  Receipt Date: 20070925
  Transmission Date: 20080405
  Serious: Yes (Life-Threatening, Other)
  Sender: FDA-Public Use
  Company Number: 2007SP019469

PATIENT
  Age: 39 Year
  Sex: Female
  Weight: 60.782 kg

DRUGS (5)
  1. ASMANEX TWISTHALER [Suspect]
     Indication: ASTHMA
     Dosage: 2 DF; HS; PO
     Route: 048
     Dates: start: 20070705, end: 20070705
  2. ELMIRON [Concomitant]
  3. PROTONIX [Concomitant]
  4. XOPENEX [Concomitant]
  5. RHINOCORT [Concomitant]

REACTIONS (2)
  - BRONCHOSPASM [None]
  - HOT FLUSH [None]
